FAERS Safety Report 4936413-9 (Version None)
Quarter: 2006Q1

REPORT INFORMATION
  Report Type: 
  Country: None (occurrence: None)
  Receive Date: 20060127
  Receipt Date: 20051201
  Transmission Date: 20060701
  Serious: Yes (Other)
  Sender: FDA-Public Use
  Company Number: 2005164396

PATIENT

DRUGS (1)
  1. LYRICA [Suspect]
     Indication: DIABETIC NEUROPATHY
     Dosage: 150 MG (75 MG,2 IN 1 D)

REACTIONS (3)
  - DIZZINESS [None]
  - FEELING ABNORMAL [None]
  - HEADACHE [None]
